FAERS Safety Report 23574932 (Version 1)
Quarter: 2024Q1

REPORT INFORMATION
  Report Type: Spontaneous
  Country: US (occurrence: None)
  Receive Date: 20240227
  Receipt Date: 20240227
  Transmission Date: 20240409
  Serious: No
  Sender: FDA-Public Use
  Company Number: None

PATIENT
  Age: 72 Year
  Sex: Female
  Weight: 112.5 kg

DRUGS (15)
  1. MOUNJARO [Suspect]
     Active Substance: TIRZEPATIDE
     Indication: Diabetes mellitus
  2. MOBIC [Concomitant]
     Active Substance: MELOXICAM
  3. BENICAR [Concomitant]
     Active Substance: OLMESARTAN MEDOXOMIL
  4. TOVIAZ [Concomitant]
     Active Substance: FESOTERODINE FUMARATE
  5. LIPITOR [Concomitant]
     Active Substance: ATORVASTATIN CALCIUM
  6. LYRICA [Concomitant]
     Active Substance: PREGABALIN
  7. METFORMIN [Concomitant]
     Active Substance: METFORMIN HYDROCHLORIDE
  8. CYMBALTA [Concomitant]
     Active Substance: DULOXETINE HYDROCHLORIDE
  9. MOUNJARO [Concomitant]
     Active Substance: TIRZEPATIDE
  10. TOPROL XL [Concomitant]
     Active Substance: METOPROLOL SUCCINATE
  11. COUMADIN [Concomitant]
     Active Substance: WARFARIN SODIUM
  12. AMARYL [Concomitant]
     Active Substance: GLIMEPIRIDE
  13. TYLENOL [Concomitant]
     Active Substance: ACETAMINOPHEN
  14. FAMOTIDINE [Concomitant]
     Active Substance: FAMOTIDINE
  15. GasX [Concomitant]

REACTIONS (3)
  - Eructation [None]
  - Product availability issue [None]
  - Adverse drug reaction [None]
